FAERS Safety Report 26013069 (Version 1)
Quarter: 2025Q4

REPORT INFORMATION
  Report Type: Spontaneous
  Country: US (occurrence: US)
  Receive Date: 20251107
  Receipt Date: 20251107
  Transmission Date: 20260117
  Serious: No
  Sender: JAZZ
  Company Number: US-JAZZ PHARMACEUTICALS-2025-US-010037

PATIENT
  Age: 19 Year
  Sex: Male
  Weight: 65.6 kg

DRUGS (1)
  1. RYLAZE [Suspect]
     Active Substance: ASPARAGINASE ERWINIA CHRYSANTHEMI (RECOMBINANT)-RYWN
     Indication: Precursor T-lymphoblastic lymphoma/leukaemia
     Dosage: 25,25,50 MONDAY, WEDNESDAY, FRIDAYX6 REPLACE ON PEG DOSE

REACTIONS (2)
  - Arthralgia [Recovered/Resolved]
  - Pyrexia [Recovered/Resolved]

NARRATIVE: CASE EVENT DATE: 20250314
